FAERS Safety Report 8407195-3 (Version None)
Quarter: 2012Q2

REPORT INFORMATION
  Report Type: 
  Country: None (occurrence: None)
  Receive Date: 20120604
  Receipt Date: 20120523
  Transmission Date: 20120825
  Serious: Yes (Hospitalization)
  Sender: FDA-Public Use
  Company Number: DE-ELI_LILLY_AND_COMPANY-DE201205007850

PATIENT
  Sex: Female

DRUGS (4)
  1. FORTEO [Suspect]
     Indication: OSTEOPOROSIS
     Dosage: UNK, QD
     Route: 058
     Dates: start: 20110212
  2. SPASMEX [Concomitant]
     Dosage: UNK
     Dates: start: 20100101
  3. AMLODIPINE BESYLATE [Concomitant]
  4. OXYCODONE HCL [Concomitant]
     Dosage: 1 DF, BID
     Dates: start: 20100101

REACTIONS (4)
  - ARTHRALGIA [None]
  - PROCEDURAL SITE REACTION [None]
  - JOINT DISLOCATION POSTOPERATIVE [None]
  - HIP ARTHROPLASTY [None]
